FAERS Safety Report 19936947 (Version 1)
Quarter: 2021Q4

REPORT INFORMATION
  Report Type: Report from Study
  Country: None (occurrence: CO)
  Receive Date: 20211009
  Receipt Date: 20211009
  Transmission Date: 20220303
  Serious: Yes (Other)
  Sender: FDA-Public Use
  Company Number: CO-ABBVIE-21K-036-3893452-00

PATIENT
  Age: 70 Year
  Sex: Female
  Weight: 77 kg

DRUGS (6)
  1. HUMIRA [Suspect]
     Active Substance: ADALIMUMAB
     Indication: Psoriasis
     Route: 058
     Dates: start: 20120528
  2. HUMIRA [Suspect]
     Active Substance: ADALIMUMAB
     Indication: Psoriasis
     Route: 058
  3. OMEGA [Concomitant]
     Indication: Symptomatic treatment
     Route: 048
     Dates: start: 2020
  4. MAGNESIUM GLUCONATE [Concomitant]
     Active Substance: MAGNESIUM GLUCONATE
     Indication: Symptomatic treatment
     Route: 048
     Dates: start: 2020
  5. CALCIUM [Concomitant]
     Active Substance: CALCIUM
     Indication: Arthritis
     Route: 048
     Dates: start: 2020
  6. COLLAGEN [Concomitant]
     Active Substance: COLLAGEN
     Indication: Symptomatic treatment
     Route: 048
     Dates: start: 2020

REACTIONS (15)
  - Amnesia [Recovering/Resolving]
  - Osteoarthritis [Recovering/Resolving]
  - Gait disturbance [Recovering/Resolving]
  - Gastrointestinal disorder [Recovering/Resolving]
  - Fluid retention [Recovering/Resolving]
  - Arthritis [Recovering/Resolving]
  - Pain in extremity [Recovering/Resolving]
  - Therapeutic product effect incomplete [Recovering/Resolving]
  - Psoriasis [Recovering/Resolving]
  - Gastrointestinal pain [Not Recovered/Not Resolved]
  - Gastritis [Not Recovered/Not Resolved]
  - Decreased appetite [Not Recovered/Not Resolved]
  - Palatal disorder [Not Recovered/Not Resolved]
  - Ageusia [Not Recovered/Not Resolved]
  - Body height decreased [Unknown]

NARRATIVE: CASE EVENT DATE: 20210401
